FAERS Safety Report 8845833 (Version 1)
Quarter: 2012Q4

REPORT INFORMATION
  Report Type: 
  Country: US (occurrence: US)
  Receive Date: 20121017
  Receipt Date: 20121017
  Transmission Date: 20130627
  Serious: No
  Sender: FDA-Public Use
  Company Number: US-ASTRAZENECA-2012SE72411

PATIENT
  Age: 57 Year
  Sex: Female
  Weight: 106.6 kg

DRUGS (13)
  1. CRESTOR [Suspect]
     Indication: BLOOD CHOLESTEROL
     Route: 048
     Dates: start: 201207, end: 20120727
  2. LISINOPRIL [Suspect]
     Indication: HYPERTENSION
     Route: 048
     Dates: start: 201111, end: 201111
  3. OMEPRAZOLE [Suspect]
     Indication: GASTROOESOPHAGEAL REFLUX DISEASE
     Route: 048
     Dates: start: 2012
  4. METOPROLOL SUCCINATE ER [Suspect]
     Indication: BLOOD PRESSURE ABNORMAL
     Route: 048
     Dates: start: 201206
  5. TRIAMTERENE HCTZ [Concomitant]
     Indication: BLOOD PRESSURE ABNORMAL
  6. IBUPROFEN [Concomitant]
     Indication: MYALGIA
     Route: 048
     Dates: start: 201207
  7. TYLENOL [Concomitant]
     Indication: MYALGIA
     Dates: start: 201207
  8. AMOXICILLIN [Concomitant]
     Indication: TOOTH INFECTION
  9. SKELAZIN [Concomitant]
     Indication: MUSCLE RELAXANT THERAPY
  10. LIPITOR [Concomitant]
  11. CHONDROITIN [Concomitant]
  12. VITAMIN D [Concomitant]
  13. COQ10 [Concomitant]

REACTIONS (22)
  - Skin haemorrhage [Unknown]
  - Gait disturbance [Unknown]
  - Back pain [Unknown]
  - Neck pain [Unknown]
  - Tooth disorder [Unknown]
  - Vitamin D deficiency [Unknown]
  - Cough [Unknown]
  - Skin lesion [Unknown]
  - Paraesthesia [Unknown]
  - Muscle spasms [Unknown]
  - Pain in extremity [Unknown]
  - Musculoskeletal pain [Unknown]
  - Insomnia [Unknown]
  - Pruritus [Unknown]
  - Myalgia [Unknown]
  - Urticaria [Unknown]
  - Arthralgia [Unknown]
  - Asthenia [Unknown]
  - Headache [Unknown]
  - Pruritus [Unknown]
  - Musculoskeletal pain [Unknown]
  - Dyspnoea [Unknown]
